FAERS Safety Report 4719031-7 (Version None)
Quarter: 2005Q3

REPORT INFORMATION
  Report Type: 
  Country: None (occurrence: None)
  Receive Date: 20050720
  Receipt Date: 20050704
  Transmission Date: 20060218
  Serious: Yes (Death)
  Sender: FDA-Public Use
  Company Number: 2005087302

PATIENT
  Age: 14 Year
  Sex: Female
  Weight: 38.8 kg

DRUGS (3)
  1. VIAGRA [Suspect]
     Indication: PULMONARY HYPERTENSION
     Dosage: 100 MG (25 MG, 4 IN 1 D), ORAL
     Route: 048
     Dates: start: 20020129
  2. WARFARIN SODIUM [Concomitant]
  3. ASPIRIN [Concomitant]

REACTIONS (4)
  - CHEST PAIN [None]
  - CONVULSION [None]
  - FALL [None]
  - SUDDEN DEATH [None]
